FAERS Safety Report 8610488 (Version 2)
Quarter: 2013Q4

REPORT INFORMATION
  Report Type: Spontaneous
  Country: US (occurrence: US)
  Receive Date: 20120612
  Receipt Date: 20131213
  Transmission Date: 20140711
  Serious: No
  Sender: FDA-Public Use
  Company Number: US-ASTRAZENECA-2012SE30664

PATIENT
  Age: 76 Year
  Sex: Male
  Weight: 90.3 kg

DRUGS (35)
  1. SEROQUEL XR [Suspect]
     Indication: DEPRESSION
     Dosage: GENERIC
     Route: 048
  2. SEROQUEL XR [Suspect]
     Indication: DELUSION
     Dosage: GENERIC
     Route: 048
  3. SEROQUEL XR [Suspect]
     Indication: DEPRESSION
     Route: 048
  4. SEROQUEL XR [Suspect]
     Indication: DELUSION
     Route: 048
  5. SEROQUEL XR [Suspect]
     Indication: DEPRESSION
     Route: 048
  6. SEROQUEL XR [Suspect]
     Indication: DELUSION
     Route: 048
  7. SEROQUEL XR [Suspect]
     Indication: DEPRESSION
     Route: 048
  8. SEROQUEL XR [Suspect]
     Indication: DELUSION
     Route: 048
  9. SEROQUEL XR [Suspect]
     Indication: DEPRESSION
     Route: 048
  10. SEROQUEL XR [Suspect]
     Indication: DELUSION
     Route: 048
  11. SEROQUEL XR [Suspect]
     Indication: DEPRESSION
     Dosage: GENERIC
     Route: 048
  12. SEROQUEL XR [Suspect]
     Indication: DELUSION
     Dosage: GENERIC
     Route: 048
  13. SEROQUEL XR [Suspect]
     Indication: DEPRESSION
     Route: 048
     Dates: start: 201111
  14. SEROQUEL XR [Suspect]
     Indication: DELUSION
     Route: 048
     Dates: start: 201111
  15. SEROQUEL XR [Suspect]
     Indication: DEPRESSION
     Route: 048
  16. SEROQUEL XR [Suspect]
     Indication: DELUSION
     Route: 048
  17. SEROQUEL XR [Suspect]
     Indication: DEPRESSION
     Route: 048
  18. SEROQUEL XR [Suspect]
     Indication: DELUSION
     Route: 048
  19. SEROQUEL XR [Suspect]
     Indication: DEPRESSION
     Dosage: 150 MG, ONE AT 2:30 PM AND ONE AT 7:00 PM
     Route: 048
  20. SEROQUEL XR [Suspect]
     Indication: DELUSION
     Dosage: 150 MG, ONE AT 2:30 PM AND ONE AT 7:00 PM
     Route: 048
  21. NEXIUM [Suspect]
     Indication: ABDOMINAL DISCOMFORT
     Route: 048
  22. ZOLOFT [Concomitant]
  23. ZOLOFT [Concomitant]
  24. RISPERDOL [Concomitant]
  25. LEVOTHYROXINE [Concomitant]
  26. CETRIZINE [Concomitant]
     Indication: HYPERSENSITIVITY
  27. DILTIAZEM SA [Concomitant]
     Indication: BLOOD PRESSURE ABNORMAL
  28. BABY ASPIRIN [Concomitant]
  29. BABY ASPIRIN [Concomitant]
  30. ZANTAC [Concomitant]
     Indication: ABDOMINAL DISCOMFORT
  31. PRAVASTATIN [Concomitant]
     Indication: BLOOD CHOLESTEROL ABNORMAL
  32. LASIX [Concomitant]
     Dosage: 40 MG, DAILY, AS NEEDED
  33. LASIX [Concomitant]
  34. POTASSIUM [Concomitant]
  35. REMERON [Concomitant]

REACTIONS (9)
  - Hyperhidrosis [Unknown]
  - Chills [Unknown]
  - Adverse event [Unknown]
  - Delusion [Recovering/Resolving]
  - Regressive behaviour [Unknown]
  - Feeling hot [Unknown]
  - Poor quality sleep [Unknown]
  - Off label use [Unknown]
  - Drug ineffective for unapproved indication [Unknown]
